FAERS Safety Report 5481077-1 (Version None)
Quarter: 2007Q4

REPORT INFORMATION
  Report Type: 
  Country: None (occurrence: None)
  Receive Date: 20071003
  Receipt Date: 20070925
  Transmission Date: 20080405
  Serious: Yes (Other)
  Sender: FDA-Public Use
  Company Number: 161960USA

PATIENT
  Age: 34 Year
  Sex: Female

DRUGS (2)
  1. PIMOZIDE TABLETS (PIMOZIDE) [Suspect]
     Dosage: 21 MG (21 MG, 1 IN 1 D) ORAL
     Route: 048
     Dates: start: 20070915, end: 20070915
  2. ZOLPIDEM TARTRATE [Suspect]
     Dosage: 200 MG (200 MG, 1 IN 1 D) ORAL
     Route: 048
     Dates: start: 20070915, end: 20070915

REACTIONS (2)
  - INTENTIONAL OVERDOSE [None]
  - SUICIDE ATTEMPT [None]
